FAERS Safety Report 8739627 (Version 2)
Quarter: 2012Q4

REPORT INFORMATION
  Report Type: 
  Country: US (occurrence: US)
  Receive Date: 20120823
  Receipt Date: 20120913
  Transmission Date: 20130627
  Serious: No
  Sender: FDA-Public Use
  Company Number: US-009507513-1208USA000501

PATIENT

DRUGS (1)
  1. JANUMET XR [Suspect]
     Indication: TYPE 2 DIABETES MELLITUS
     Dosage: 50/1000,2 df  in the evening
     Route: 048

REACTIONS (2)
  - Sleep disorder [Recovered/Resolved]
  - Pain in extremity [Recovered/Resolved]
